FAERS Safety Report 11790115 (Version 1)
Quarter: 2015Q4

REPORT INFORMATION
  Report Type: Spontaneous
  Country: US (occurrence: None)
  Receive Date: 20151130
  Receipt Date: 20151130
  Transmission Date: 20160305
  Serious: Yes (Other)
  Sender: FDA-Public Use
  Company Number: None

PATIENT
  Age: 51 Year
  Sex: Female

DRUGS (1)
  1. HUMIRA [Suspect]
     Active Substance: ADALIMUMAB
     Indication: PSORIATIC ARTHROPATHY
     Dosage: DOSE FORM: INJECTABLE  FREQUENCY: EVERY 2 WKS
     Route: 058
     Dates: start: 20150908

REACTIONS (1)
  - Infection [None]

NARRATIVE: CASE EVENT DATE: 20151125
